FAERS Safety Report 18858419 (Version 1)
Quarter: 2021Q1

REPORT INFORMATION
  Report Type: Spontaneous
  Country: FR (occurrence: FR)
  Receive Date: 20210208
  Receipt Date: 20210208
  Transmission Date: 20210420
  Serious: Yes (Hospitalization, Other)
  Sender: FDA-Public Use
  Company Number: FR-EPICPHARMA-FR-2021EPCLIT00090

PATIENT
  Age: 37 Year
  Sex: Female

DRUGS (1)
  1. METHADONE [Suspect]
     Active Substance: METHADONE HYDROCHLORIDE
     Indication: PRODUCT USED FOR UNKNOWN INDICATION
     Route: 065

REACTIONS (11)
  - Mitral valve prolapse [Recovered/Resolved]
  - Intentional overdose [Unknown]
  - Generalised oedema [Recovered/Resolved]
  - Aneurysm [Recovered/Resolved]
  - Haemodynamic instability [Recovered/Resolved]
  - Endocarditis [Recovered/Resolved]
  - Myocardial infarction [Recovered/Resolved]
  - Vascular pseudoaneurysm [Recovered/Resolved]
  - Mitral valve incompetence [Recovered/Resolved]
  - Meningitis staphylococcal [Recovered/Resolved]
  - Toxicity to various agents [Unknown]
